FAERS Safety Report 14753872 (Version 2)
Quarter: 2018Q2

REPORT INFORMATION
  Report Type: Spontaneous
  Country: PL (occurrence: PL)
  Receive Date: 20180412
  Receipt Date: 20180503
  Transmission Date: 20180711
  Serious: Yes (Other)
  Sender: FDA-Public Use
  Company Number: PL-TEVA-2018-PL-880679

PATIENT
  Age: 35 Year
  Sex: Female
  Weight: 89 kg

DRUGS (7)
  1. HERCEPTIN [Suspect]
     Active Substance: TRASTUZUMAB
     Dosage: EVERY 3 WEEKS, 712 MG FIRST ADMINISTRATION, 534 MG NEXT
     Route: 042
     Dates: start: 20170320, end: 20170918
  2. PERJETA [Suspect]
     Active Substance: PERTUZUMAB
     Indication: HER-2 POSITIVE BREAST CANCER
     Dosage: EVERY 3 WEEKS 840 MG FIRST DOSE THEN NEXT 420 MG INFUSION
     Route: 065
     Dates: start: 20170320, end: 20170918
  3. ZOLEDRONIC ACID [Concomitant]
     Active Substance: ZOLEDRONIC ACID
     Route: 065
  4. EUTHYROX N [Concomitant]
     Active Substance: LEVOTHYROXINE SODIUM
     Route: 065
  5. HERCEPTIN [Suspect]
     Active Substance: TRASTUZUMAB
     Indication: HER-2 POSITIVE BREAST CANCER
     Dosage: THE FIRST LINE OF A GENERALIZED DISEASE
     Route: 042
     Dates: start: 20150427
  6. DOCETAXEL. [Suspect]
     Active Substance: DOCETAXEL
     Indication: HER-2 POSITIVE BREAST CANCER
     Dosage: 150 MG, UNKNOWN (EVERY 3 WEEKS)
     Route: 065
     Dates: start: 20170320, end: 20170710
  7. PACLITAXEL. [Suspect]
     Active Substance: PACLITAXEL
     Indication: HER-2 POSITIVE BREAST CANCER
     Dosage: 8 ADMINISTRATIONS
     Route: 065

REACTIONS (5)
  - Bone pain [Unknown]
  - Bronchitis [Unknown]
  - Cough [Unknown]
  - Polyneuropathy [Recovered/Resolved]
  - Neoplasm progression [Unknown]

NARRATIVE: CASE EVENT DATE: 20170701
